FAERS Safety Report 13030307 (Version 1)
Quarter: 2016Q4

REPORT INFORMATION
  Report Type: Report from Study
  Country: US (occurrence: US)
  Receive Date: 20161215
  Receipt Date: 20161215
  Transmission Date: 20170207
  Serious: Yes (Hospitalization)
  Sender: FDA-Public Use
  Company Number: US-MALLINCKRODT-T201606343

PATIENT
  Sex: Female

DRUGS (12)
  1. LISINOPRIL. [Concomitant]
     Active Substance: LISINOPRIL
     Dosage: UNKNOWN
  2. REPOSITORY CORTICOTROPIN INJECTION [Suspect]
     Active Substance: CORTICOTROPIN
     Indication: POLYMYOSITIS
     Dosage: 80U/1ML, TWICE WEEKLY
     Route: 058
  3. METHOTREXATE. [Concomitant]
     Active Substance: METHOTREXATE
     Dosage: 2.5 MG, UNKNOWN FREQUENCY
  4. PREDNISONE. [Concomitant]
     Active Substance: PREDNISONE
     Dosage: 10 MG , UNKNOWN FREQUENCY
  5. NOVOLOG [Concomitant]
     Active Substance: INSULIN ASPART
     Dosage: FLEX PEN 100 UNITS/ML , UNKNOWN FREQUENCY
  6. VITAMIN D [Concomitant]
     Active Substance: CHOLECALCIFEROL
     Dosage: UNKNOWN
  7. ADVAIR HFA [Concomitant]
     Active Substance: FLUTICASONE PROPIONATE\SALMETEROL XINAFOATE
     Dosage: ^ADVAIR DISKUS^, UNKNOWN
  8. ACTONEL [Concomitant]
     Active Substance: RISEDRONATE SODIUM
     Dosage: 150 MG, UNKNOWN FREQUENCY
  9. VERAMYST [Concomitant]
     Active Substance: FLUTICASONE FUROATE
     Dosage: NASAL SPRAY, UNKNOWN FREQUENCY
  10. FOLIC ACID. [Concomitant]
     Active Substance: FOLIC ACID
     Dosage: 1 MG , UNKNOWN FREQUENCY
  11. LEVEMIR [Concomitant]
     Active Substance: INSULIN DETEMIR
     Dosage: PEN, 100 UNITS/ML , UNKNOWN FREQUENCY
  12. PREDNISONE. [Concomitant]
     Active Substance: PREDNISONE
     Dosage: 20 MG, UNKNOWN FREQUENCY

REACTIONS (4)
  - Enzyme abnormality [Unknown]
  - Asthenia [Unknown]
  - Myalgia [Unknown]
  - Pain [Unknown]

NARRATIVE: CASE EVENT DATE: 2016
